FAERS Safety Report 9896878 (Version 1)
Quarter: 2014Q1

REPORT INFORMATION
  Report Type: Report from Study
  Country: FR (occurrence: FR)
  Receive Date: 20140214
  Receipt Date: 20140214
  Transmission Date: 20141002
  Serious: Yes (Hospitalization, Other)
  Sender: FDA-Public Use
  Company Number: FR-ROCHE-1343539

PATIENT
  Sex: Male

DRUGS (13)
  1. RITUXIMAB [Suspect]
     Indication: RHEUMATOID ARTHRITIS
     Dosage: DAY 1
     Route: 065
     Dates: start: 20080605
  2. RITUXIMAB [Suspect]
     Dosage: DAY 15
     Route: 065
     Dates: start: 20080620
  3. RITUXIMAB [Suspect]
     Dosage: DAY 1
     Route: 065
     Dates: start: 20090421
  4. RITUXIMAB [Suspect]
     Dosage: DAY 15
     Route: 065
     Dates: start: 20090505
  5. RITUXIMAB [Suspect]
     Dosage: DAY 1
     Route: 065
     Dates: start: 20110628
  6. RITUXIMAB [Suspect]
     Dosage: DAY 15
     Route: 065
     Dates: start: 20110712
  7. RITUXIMAB [Suspect]
     Dosage: DAY 1
     Route: 065
     Dates: start: 20120430
  8. RITUXIMAB [Suspect]
     Dosage: DAY 15
     Route: 065
     Dates: start: 20120417
  9. RITUXIMAB [Suspect]
     Dosage: DAY 1
     Route: 065
     Dates: start: 20130204
  10. RITUXIMAB [Suspect]
     Dosage: DAY 15
     Route: 065
     Dates: start: 20130218
  11. CORTANCYL [Concomitant]
     Route: 065
  12. CORTANCYL [Concomitant]
     Route: 065
  13. SIMVASTATINE [Concomitant]
     Dosage: 40 MG/L
     Route: 065

REACTIONS (6)
  - Renal amyloidosis [Not Recovered/Not Resolved]
  - Cardiac failure [Not Recovered/Not Resolved]
  - Diabetes mellitus inadequate control [Not Recovered/Not Resolved]
  - Amyloidosis [Not Recovered/Not Resolved]
  - Hypothyroidism [Not Recovered/Not Resolved]
  - Hyperthyroidism [Not Recovered/Not Resolved]
